FAERS Safety Report 5947978-2 (Version None)
Quarter: 2008Q4

REPORT INFORMATION
  Report Type: 
  Country: None (occurrence: None)
  Receive Date: 20081107
  Receipt Date: 20081024
  Transmission Date: 20090506
  Serious: Yes (Death)
  Sender: FDA-Public Use
  Company Number: 20391

PATIENT
  Sex: Male

DRUGS (12)
  1. VINCRISTINE [Suspect]
     Dates: start: 20060201, end: 20060421
  2. METHOTREXATE [Suspect]
  3. ETOPOSIDE [Suspect]
  4. CYTARABINE [Suspect]
  5. BEVACIZUMAB [Suspect]
     Dosage: 200 MG/KG
     Dates: start: 20050331
  6. CARMUSTINE [Suspect]
  7. CHLORAMBUCIL [Suspect]
     Indication: NON-HODGKIN'S LYMPHOMA UNSPECIFIED HISTOLOGY INDOLENT STAGE III
     Dates: start: 20010901
  8. CYCLOPHOSPHAMIDE [Suspect]
     Dates: start: 20060201, end: 20060421
  9. PREDNISOLONE [Suspect]
     Dates: start: 20060201, end: 20060421
  10. RITUXIMAB [Suspect]
     Dates: start: 20050331
  11. ZEVALIN [Suspect]
     Dates: start: 20050407
  12. CHLORAMBUCIL [Concomitant]

REACTIONS (1)
  - ACUTE MYELOID LEUKAEMIA [None]
